FAERS Safety Report 8808685 (Version 2)
Quarter: 2012Q4

REPORT INFORMATION
  Report Type: Spontaneous
  Country: US (occurrence: None)
  Receive Date: 20120919
  Receipt Date: 20121016
  Transmission Date: 20130627
  Serious: Yes (Other)
  Sender: FDA-Public Use
  Company Number: AUR-APL-2012-04001

PATIENT
  Age: 49 Year
  Sex: Female
  Weight: 79.36 kg

DRUGS (6)
  1. VENLAFAXINE [Suspect]
     Indication: PAIN
  2. VENLAFAXINE [Suspect]
     Indication: MAJOR DEPRESSION
  3. ZOLOFT (SERTRALINE) [Suspect]
     Indication: PAIN
     Dates: start: 2000
  4. ZOLOFT (SERTRALINE) [Suspect]
     Indication: MAJOR DEPRESSION
     Dates: start: 2000
  5. CYMBALTA [Suspect]
     Indication: PAIN
     Dates: end: 201208
  6. CYMBALTA [Suspect]
     Indication: MAJOR DEPRESSION
     Dates: end: 201208

REACTIONS (5)
  - Nervousness [None]
  - Visual impairment [None]
  - Unevaluable event [None]
  - Eye disorder [None]
  - Major depression [None]
